FAERS Safety Report 9910149 (Version 1)
Quarter: 2014Q1

REPORT INFORMATION
  Report Type: Spontaneous
  Country: US (occurrence: None)
  Receive Date: 20140212
  Receipt Date: 20140212
  Transmission Date: 20141002
  Serious: Yes (Death)
  Sender: FDA-Public Use
  Company Number: 1402-0293

PATIENT
  Age: 93 Year
  Sex: 0

DRUGS (1)
  1. EYLEA [Suspect]
     Dates: start: 20130328, end: 20131015

REACTIONS (1)
  - Death [None]
